FAERS Safety Report 6983598-9 (Version None)
Quarter: 2010Q3

REPORT INFORMATION
  Report Type: 
  Country: None (occurrence: None)
  Receive Date: 20100914
  Receipt Date: 20081002
  Transmission Date: 20110219
  Serious: Yes (Hospitalization)
  Sender: FDA-Public Use
  Company Number: US-WYE-H06244108

PATIENT
  Sex: Male
  Weight: 88.98 kg

DRUGS (5)
  1. TYGACIL [Suspect]
     Indication: LUNG INFECTION
     Dosage: 50 MG/ML EVERY 12 HOURS
     Route: 042
     Dates: start: 20080915, end: 20080921
  2. TYGACIL [Suspect]
     Indication: MYCOBACTERIUM CHELONEI INFECTION
  3. TYGACIL [Suspect]
     Indication: MYCOBACTERIUM ABSCESSUS INFECTION
  4. AMIKACIN [Concomitant]
     Indication: MYCOBACTERIUM CHELONEI INFECTION
     Dosage: 750 MG DAILY
     Route: 042
     Dates: start: 20080811
  5. AMIKACIN [Concomitant]
     Indication: LUNG INFECTION

REACTIONS (1)
  - PANCREATITIS [None]
